FAERS Safety Report 8143448-4 (Version None)
Quarter: 2012Q1

REPORT INFORMATION
  Report Type: 
  Country: None (occurrence: None)
  Receive Date: 20120217
  Receipt Date: 20120209
  Transmission Date: 20120608
  Serious: Yes (Hospitalization)
  Sender: FDA-Public Use
  Company Number: BR-US-EMD SERONO, INC.-7112618

PATIENT
  Sex: Male

DRUGS (10)
  1. GABAPENTIN [Concomitant]
     Indication: PRODUCT USED FOR UNKNOWN INDICATION
  2. PANTOPRAZOLE [Concomitant]
     Indication: PRODUCT USED FOR UNKNOWN INDICATION
  3. GLIMEPIRIDE [Concomitant]
     Indication: PRODUCT USED FOR UNKNOWN INDICATION
  4. POTASSIUM LOSARTAN [Concomitant]
     Indication: PRODUCT USED FOR UNKNOWN INDICATION
  5. REBIF [Suspect]
     Indication: PRODUCT USED FOR UNKNOWN INDICATION
     Dates: start: 20110621, end: 20111230
  6. AMYTRIPTYLINE (AMITRIPTYLINE) [Concomitant]
     Indication: PRODUCT USED FOR UNKNOWN INDICATION
  7. JANUVIA [Concomitant]
     Indication: PRODUCT USED FOR UNKNOWN INDICATION
  8. NIFEDIPINE [Concomitant]
     Indication: PRODUCT USED FOR UNKNOWN INDICATION
  9. LYRICA [Concomitant]
     Indication: PRODUCT USED FOR UNKNOWN INDICATION
  10. METFORMIN HYDROCHLORIDE [Concomitant]
     Indication: PRODUCT USED FOR UNKNOWN INDICATION

REACTIONS (4)
  - CHILLS [None]
  - ANAEMIA [None]
  - POST PROCEDURAL COMPLICATION [None]
  - GENITAL DISORDER MALE [None]
